FAERS Safety Report 17261416 (Version 1)
Quarter: 2019Q4

REPORT INFORMATION
  Report Type: Spontaneous
  Country: US (occurrence: US)
  Receive Date: 20191217
  Receipt Date: 20191217
  Transmission Date: 20200122
  Serious: Yes (Disabling)
  Sender: FDA-Public Use
  Company Number: None

PATIENT

DRUGS (2)
  1. LOVASTATIN. [Suspect]
     Active Substance: LOVASTATIN
  2. ATORVASTATIN 10MG DAILY [Suspect]
     Active Substance: ATORVASTATIN

REACTIONS (3)
  - Dyspepsia [None]
  - Pleurisy [None]
  - Back pain [None]

NARRATIVE: CASE EVENT DATE: 20060601
